FAERS Safety Report 6881068-X (Version None)
Quarter: 2010Q3

REPORT INFORMATION
  Report Type: 
  Country: None (occurrence: None)
  Receive Date: 20100727
  Receipt Date: 20100716
  Transmission Date: 20110219
  Serious: Yes (Hospitalization)
  Sender: FDA-Public Use
  Company Number: US-BIOGENIDEC-2010BI024022

PATIENT
  Age: 62 Year
  Sex: Female
  Weight: 86 kg

DRUGS (3)
  1. AVONEX [Suspect]
     Indication: MULTIPLE SCLEROSIS
     Route: 030
     Dates: start: 19990401, end: 20030801
  2. AVONEX [Suspect]
     Route: 030
     Dates: start: 20030801
  3. BENICAR [Concomitant]
     Indication: HYPERTENSION

REACTIONS (1)
  - HEART RATE DECREASED [None]
